FAERS Safety Report 7325472-4 (Version None)
Quarter: 2011Q1

REPORT INFORMATION
  Report Type: 
  Country: None (occurrence: None)
  Receive Date: 20110302
  Receipt Date: 20110218
  Transmission Date: 20110831
  Serious: Yes (Hospitalization, Other)
  Sender: FDA-Public Use
  Company Number: US-ELI_LILLY_AND_COMPANY-US201009002455

PATIENT
  Sex: Female

DRUGS (12)
  1. SINGULAIR [Concomitant]
  2. FIBER [Concomitant]
  3. IRON [Concomitant]
  4. FORTEO [Suspect]
     Indication: OSTEOPOROSIS
     Dosage: 20 UG, DAILY (1/D)
  5. REQUIP [Concomitant]
     Indication: RESTLESS LEGS SYNDROME
  6. VITAMIN D [Concomitant]
  7. BENICAR [Concomitant]
     Indication: BLOOD PRESSURE
  8. ICAPS [Concomitant]
  9. ZYRTEC [Concomitant]
     Indication: HYPERSENSITIVITY
  10. CALCIUM [Concomitant]
  11. NEXIUM [Concomitant]
  12. MULTI-VITAMIN [Concomitant]

REACTIONS (9)
  - RIB FRACTURE [None]
  - MUSCULAR WEAKNESS [None]
  - PNEUMOTHORAX TRAUMATIC [None]
  - BALANCE DISORDER [None]
  - PAIN [None]
  - HOSPITALISATION [None]
  - GAIT DISTURBANCE [None]
  - FALL [None]
  - DRUG DOSE OMISSION [None]
